FAERS Safety Report 6131272-3 (Version None)
Quarter: 2009Q1

REPORT INFORMATION
  Report Type: 
  Country: None (occurrence: None)
  Receive Date: 20090325
  Receipt Date: 20080215
  Transmission Date: 20090719
  Serious: Yes (Other)
  Sender: FDA-Public Use
  Company Number: US-BRISTOL-MYERS SQUIBB COMPANY-14079081

PATIENT
  Age: 53 Year
  Sex: Male

DRUGS (3)
  1. ERBITUX [Suspect]
     Indication: HEAD AND NECK CANCER
     Dosage: ERBITUX 800MG @ 50CC/HOUR IV
     Route: 042
     Dates: start: 20080215, end: 20080215
  2. RADIATION THERAPY [Suspect]
  3. BENADRYL [Concomitant]
     Indication: PREMEDICATION

REACTIONS (4)
  - BLOOD PRESSURE DECREASED [None]
  - DYSGEUSIA [None]
  - PARAESTHESIA [None]
  - THROAT IRRITATION [None]
